FAERS Safety Report 6131940-3 (Version None)
Quarter: 2009Q1

REPORT INFORMATION
  Report Type: 
  Country: None (occurrence: None)
  Receive Date: 20090325
  Receipt Date: 20090319
  Transmission Date: 20090719
  Serious: Yes (Other)
  Sender: FDA-Public Use
  Company Number: US-AVENTIS-200912246US

PATIENT
  Sex: Male

DRUGS (10)
  1. LANTUS [Suspect]
     Dosage: DOSE: UNK
  2. HUMALOG [Concomitant]
     Dosage: DOSE: UNK
  3. CRESTOR [Concomitant]
     Dosage: DOSE: UNK
  4. FEXOFENADINE [Concomitant]
     Dosage: DOSE: UNK
  5. MICARDIS [Concomitant]
     Dosage: DOSE: UNK
  6. IRON SUPPLEMENT [Concomitant]
     Dosage: DOSE: UNK
  7. MULTI-VITAMINS [Concomitant]
     Dosage: DOSE: UNK
  8. ASPIRIN [Concomitant]
     Dosage: DOSE: UNK
  9. ORAL BLOOD GLUCOSE LOWERING DRUGS [Concomitant]
     Dosage: DOSE: UNK
  10. SPIRONOLACTONE [Concomitant]
     Dosage: DOSE: UNK

REACTIONS (4)
  - BLINDNESS [None]
  - DIABETES MELLITUS INADEQUATE CONTROL [None]
  - GLYCOSYLATED HAEMOGLOBIN INCREASED [None]
  - VITREOUS HAEMORRHAGE [None]
